FAERS Safety Report 5221872-7 (Version None)
Quarter: 2007Q1

REPORT INFORMATION
  Report Type: 
  Country: None (occurrence: None)
  Receive Date: 20070129
  Receipt Date: 20070116
  Transmission Date: 20070707
  Serious: Yes (Hospitalization)
  Sender: FDA-Public Use
  Company Number: SEWYE563119APR06

PATIENT
  Sex: Male

DRUGS (6)
  1. ENBREL [Suspect]
     Indication: RHEUMATOID ARTHRITIS
     Dosage: THE DOSE REGIMEN WAS NOT SPECIFIED
     Route: 058
     Dates: start: 20030115, end: 20051201
  2. METHOTREXATE [Suspect]
     Dosage: THE DOSE REGIMEN WAS NOT SPECIFIED
     Route: 048
     Dates: end: 20060101
  3. CYCLOPHOSPHAMIDE [Concomitant]
     Dosage: NOT SPECIFIED
  4. OMEPRAZOLE [Concomitant]
  5. PREDNISOLONE [Concomitant]
  6. KETOPROFEN [Concomitant]

REACTIONS (2)
  - INTERSTITIAL LUNG DISEASE [None]
  - RESPIRATORY FAILURE [None]
